FAERS Safety Report 7466180-9 (Version None)
Quarter: 2011Q2

REPORT INFORMATION
  Report Type: 
  Country: None (occurrence: None)
  Receive Date: 20110509
  Receipt Date: 20110502
  Transmission Date: 20111010
  Serious: Yes (Hospitalization, Other)
  Sender: FDA-Public Use
  Company Number: PHHO2011US05840

PATIENT
  Sex: Male
  Weight: 83.9 kg

DRUGS (25)
  1. OMEPRAZOLE [Concomitant]
     Indication: GASTRINOMA
     Dosage: UNK
  2. LEVOTHYROXINE SODIUM [Concomitant]
     Indication: HYPERTHYROIDISM
  3. ATENOLOL [Concomitant]
     Indication: HYPERTENSION
  4. RESTORIL [Concomitant]
     Indication: INSOMNIA
  5. AMOXICILLIN [Concomitant]
     Indication: LIP INFECTION
  6. DOXYCLIN [Concomitant]
     Indication: MOUTH ULCERATION
  7. AFINITOR [Suspect]
     Dosage: NO TREATMENT
     Dates: start: 20110328, end: 20110329
  8. PLACEBO [Suspect]
     Indication: PANCREATIC NEUROENDOCRINE TUMOUR
     Dosage: UNK
     Route: 048
     Dates: start: 20090430, end: 20100621
  9. INSULIN [Concomitant]
     Indication: DIABETES MELLITUS
  10. METFORMIN [Concomitant]
     Indication: DIABETES MELLITUS
  11. OCTREOTIDE ACETATE [Concomitant]
     Indication: NEUROENDOCRINE TUMOUR
  12. REPAGLINIDE [Concomitant]
     Indication: DIABETES MELLITUS
  13. BENAZEPRIL HYDROCHLORIDE [Concomitant]
     Indication: HYPERTENSION
  14. AFINITOR [Suspect]
     Indication: PANCREATIC NEUROENDOCRINE TUMOUR
     Dosage: 5 MG, UNK
     Route: 048
     Dates: start: 20100622, end: 20110327
  15. AFINITOR [Suspect]
     Dosage: 5 MG, UNK
     Route: 048
     Dates: start: 20110330
  16. KENALOG [Concomitant]
     Indication: LIP ULCERATION
  17. LORAZEPAM [Concomitant]
     Indication: ANXIETY
  18. BENADRYL [Concomitant]
     Indication: HYPERSENSITIVITY
  19. ALENDRONATE SODIUM [Concomitant]
     Indication: OSTEOPENIA
  20. ACETAMINOPHEN [Concomitant]
     Indication: INFLUENZA
  21. SANDOSTATIN LAR [Concomitant]
     Indication: NEUROENDOCRINE TUMOUR
  22. CINACALCET [Concomitant]
     Indication: HYPERPARATHYROIDISM
  23. CIALIS [Concomitant]
     Indication: ERECTILE DYSFUNCTION
  24. ROSUVASTATIN CALCIUM [Concomitant]
     Indication: HYPERLIPIDAEMIA
  25. VIAGRA [Concomitant]
     Indication: ERECTILE DYSFUNCTION

REACTIONS (2)
  - NEPHROLITHIASIS [None]
  - VOMITING [None]
